FAERS Safety Report 8614944-8 (Version None)
Quarter: 2012Q3

REPORT INFORMATION
  Report Type: 
  Country: None (occurrence: None)
  Receive Date: 20120823
  Receipt Date: 20120807
  Transmission Date: 20120928
  Serious: Yes (Other)
  Sender: FDA-Public Use
  Company Number: JP-009507513-2012SP012857

PATIENT

DRUGS (17)
  1. ANTEBATE [Concomitant]
     Indication: ECZEMA NUMMULAR
     Dosage: UPDATE (14MAY2012)
     Route: 061
     Dates: start: 20120224
  2. LOXONIN [Concomitant]
     Indication: PROPHYLAXIS
     Dosage: UPDATE (14MAY2012)
     Route: 048
     Dates: start: 20120224
  3. VALSARTAN [Concomitant]
     Indication: HYPERTENSION
     Dosage: UPDATE (14MAY2012)
     Route: 048
  4. LASIX [Concomitant]
     Indication: HYPERTENSION
     Dosage: UPDATE (14MAY2012)
     Route: 048
  5. AMINO ACIDS (UNSPECIFIED) [Concomitant]
     Dosage: UPDATE (14MAY2012)
     Route: 065
  6. NORVASC [Concomitant]
     Indication: HYPERTENSION
     Dosage: UPDATE (14MAY2012)
     Route: 048
  7. REBETOL [Suspect]
     Indication: HEPATITIS C
     Dosage: 800 MG, QD,CUMULATIVE DOSE:3200 MG
     Route: 048
     Dates: start: 20120224, end: 20120228
  8. REBETOL [Suspect]
     Dosage: 400 MG, QD
     Route: 048
     Dates: start: 20120327, end: 20120603
  9. LANSOPRAZOLE [Concomitant]
     Indication: PROPHYLAXIS
     Dosage: UPDATE (14MAY2012)
     Route: 048
     Dates: start: 20120224
  10. TELAVIC [Suspect]
     Indication: HEPATITIS C
     Dosage: 2250 MG, QD
     Route: 048
     Dates: start: 20120224, end: 20120228
  11. ALLEGRA [Concomitant]
     Dosage: UPDATE (14MAY2012)
     Route: 065
  12. PEG-INTRON [Suspect]
     Indication: HEPATITIS C
     Dosage: 1.5 ?G/KG, QW
     Route: 058
     Dates: start: 20120224
  13. PETROLATUM [Concomitant]
     Indication: ECZEMA NUMMULAR
     Dosage: UPDATE (14MAY2012)
     Route: 061
     Dates: start: 20120224
  14. ASPIRIN [Concomitant]
     Indication: PROPHYLAXIS
     Dosage: UPDATE (14MAY2012)
     Route: 048
  15. HUMALOG [Concomitant]
     Indication: DIABETES MELLITUS
     Dosage: UPDATE (14MAY2012) :DOSE 6 UNITS
     Route: 058
  16. REBETOL [Suspect]
     Dosage: 800 MG, QD
     Route: 048
     Dates: start: 20120302, end: 20120326
  17. DOXAZOSIN MESYLATE [Concomitant]
     Indication: HYPERTENSION
     Dosage: UPDATE (14MAY2012)
     Route: 048

REACTIONS (4)
  - NEUTROPHIL COUNT DECREASED [None]
  - ERYTHEMA [None]
  - DECREASED APPETITE [None]
  - NAUSEA [None]
